FAERS Safety Report 5134657-7 (Version None)
Quarter: 2006Q4

REPORT INFORMATION
  Report Type: 
  Country: None (occurrence: None)
  Receive Date: 20061025
  Receipt Date: 20061023
  Transmission Date: 20070319
  Serious: Yes (Hospitalization)
  Sender: FDA-Public Use
  Company Number: FR-GLAXOSMITHKLINE-B0443142A

PATIENT
  Age: 36 Year
  Sex: Female

DRUGS (2)
  1. MALARONE [Suspect]
     Dosage: 12TAB SINGLE DOSE
     Route: 048
     Dates: start: 20061022, end: 20061022
  2. UNSPECIFIED DRUGS [Suspect]
     Route: 048
     Dates: start: 20061022, end: 20061022

REACTIONS (2)
  - NO ADVERSE EFFECT [None]
  - OVERDOSE [None]
